FAERS Safety Report 15659081 (Version 1)
Quarter: 2018Q4

REPORT INFORMATION
  Report Type: Report from Study
  Country: US (occurrence: US)
  Receive Date: 20181127
  Receipt Date: 20181127
  Transmission Date: 20190205
  Serious: Yes (Hospitalization, Disabling)
  Sender: FDA-Public Use
  Company Number: US-SAKK-2018SA317521AA

PATIENT
  Age: 61 Year
  Sex: Male

DRUGS (1)
  1. INSULIN GLARGINE [Suspect]
     Active Substance: INSULIN GLARGINE
     Indication: TYPE 2 DIABETES MELLITUS
     Dosage: 4-6 UNIT
     Route: 058

REACTIONS (4)
  - Skin discolouration [Recovered/Resolved]
  - Blood glucose increased [Recovered/Resolved]
  - Product dose omission [Unknown]
  - Disability [Not Recovered/Not Resolved]
